FAERS Safety Report 7321238-X (Version None)
Quarter: 2011Q1

REPORT INFORMATION
  Report Type: 
  Country: None (occurrence: None)
  Receive Date: 20110228
  Receipt Date: 20110217
  Transmission Date: 20110831
  Serious: Yes (Hospitalization, Other)
  Sender: FDA-Public Use
  Company Number: US-ASTRAZENECA-2011SE09505

PATIENT
  Age: 80 Year
  Sex: Female

DRUGS (2)
  1. PLENDIL [Suspect]
     Indication: CARDIAC DISORDER
     Route: 048
     Dates: start: 19910101
  2. TENORMIN [Concomitant]

REACTIONS (3)
  - RECURRENT CANCER [None]
  - THYROID CANCER [None]
  - COLON CANCER [None]
